FAERS Safety Report 9733103 (Version 3)
Quarter: 2013Q4

REPORT INFORMATION
  Report Type: Spontaneous
  Country: US (occurrence: None)
  Receive Date: 20131203
  Receipt Date: 20131224
  Transmission Date: 20140711
  Serious: Yes (Hospitalization)
  Sender: FDA-Public Use
  Company Number: AUR-APL-2013-10097

PATIENT
  Age: 46 Year
  Sex: Male

DRUGS (20)
  1. LEVETIRACETAM [Suspect]
     Indication: CONVULSION
     Dosage: 2 GM (1 GM, 1 IN 12 HR), ORAL
     Route: 048
  2. LEVETIRACETAM [Suspect]
     Indication: METASTASES TO CENTRAL NERVOUS SYSTEM
     Dosage: 2 GM (1 GM, 1 IN 12 HR), ORAL
     Route: 048
  3. METHOTREXATE [Suspect]
     Indication: OSTEOSARCOMA
     Dosage: 24 GM 4 HR, INTRAVENOUS
     Route: 042
  4. IFOSFAMIDE [Concomitant]
  5. ETOPOSIDE [Concomitant]
  6. LISINOPRIL [Concomitant]
  7. SIMVASTATIN [Concomitant]
  8. GLIPIZIDE [Concomitant]
  9. ASPIRIN (ACETYLSALICYLICACID) [Concomitant]
  10. CISPLATIN [Concomitant]
  11. DOXORUBICIN [Concomitant]
  12. CARBOPLATIN [Concomitant]
  13. LEUCOVORIN (FOLINIC ACID) [Concomitant]
  14. SODIUM BICARBONATE [Concomitant]
  15. INSULIN GLARGINE [Concomitant]
  16. INSULIN ASPART [Concomitant]
  17. OXYCODONE [Concomitant]
  18. PROCHLOROPERAZINE [Concomitant]
  19. ONDANSETRON [Concomitant]
  20. FAMOTIDINE [Concomitant]

REACTIONS (2)
  - Drug interaction [None]
  - Drug clearance decreased [None]
